FAERS Safety Report 5020286-2 (Version None)
Quarter: 2006Q2

REPORT INFORMATION
  Report Type: 
  Country: None (occurrence: None)
  Receive Date: 20060607
  Receipt Date: 20051209
  Transmission Date: 20061013
  Serious: Yes (Death, Other)
  Sender: FDA-Public Use
  Company Number: JP-SANOFI-SYNTHELABO-F01200502723

PATIENT
  Sex: Male
  Weight: 55 kg

DRUGS (21)
  1. INTEBAN [Concomitant]
     Dosage: 25 MG PR
     Dates: start: 20051206, end: 20051206
  2. INOVAN [Concomitant]
     Dosage: 5 DF
     Route: 042
     Dates: start: 20051205, end: 20051209
  3. FULCALIQ 2 [Concomitant]
     Dosage: 4 DF
     Route: 042
     Dates: start: 20051205, end: 20051205
  4. LEPETAN [Concomitant]
     Route: 042
     Dates: start: 20051204, end: 20051209
  5. DORICUM [Concomitant]
     Route: 042
     Dates: start: 20051204, end: 20051209
  6. BENAMBAX [Concomitant]
     Route: 042
     Dates: start: 20051203, end: 20051206
  7. VORICONAZOLE [Concomitant]
     Route: 042
     Dates: start: 20051203, end: 20051206
  8. KENKETSU GLOVENIN-1NICHIYAKU [Concomitant]
     Dosage: 2 DF
     Route: 042
     Dates: start: 20051203, end: 20051205
  9. FULCALIQ 1 [Concomitant]
     Dosage: 1 DF
     Route: 042
     Dates: start: 20051203, end: 20051204
  10. TIENAM [Concomitant]
     Route: 042
     Dates: start: 20051202, end: 20051202
  11. ELEMENMIC [Concomitant]
     Dosage: 1 DF
     Route: 042
     Dates: start: 20051203, end: 20051203
  12. BACTRIM [Concomitant]
     Route: 048
     Dates: start: 20051202, end: 20051203
  13. SOLDEM 3A [Concomitant]
     Dosage: 1 DF
     Route: 042
     Dates: start: 20051202, end: 20051203
  14. LACTEC [Concomitant]
     Dosage: 1 DF
     Route: 042
     Dates: start: 20051202, end: 20051203
  15. MAGNESIUM OXIDE [Concomitant]
     Route: 048
     Dates: start: 20051129, end: 20051204
  16. PANSPORIN [Concomitant]
     Route: 042
     Dates: start: 20051128, end: 20051202
  17. MINOCYCLINE HCL [Concomitant]
     Route: 042
     Dates: start: 20051128, end: 20051128
  18. LEUCOVORIN CALCIUM [Suspect]
     Route: 042
     Dates: start: 20051124, end: 20051124
  19. FLUOROURACIL [Suspect]
     Dosage: 400MG/BODY =261.4MG/M2 IN BOLUS THEN 600MG/BODY=392.2MG/M2 AS CONTINUOUS INFUSION ON DAYS 1 AND 2
     Route: 040
     Dates: start: 20051124, end: 20051124
  20. FLUOROURACIL [Suspect]
     Route: 042
     Dates: start: 20051124, end: 20051124
  21. OXALIPLATIN [Suspect]
     Indication: COLON CANCER
     Route: 042
     Dates: start: 20051202, end: 20051202

REACTIONS (8)
  - ABDOMINAL PAIN [None]
  - ASPARTATE AMINOTRANSFERASE INCREASED [None]
  - DIARRHOEA [None]
  - INTERSTITIAL LUNG DISEASE [None]
  - NEUTROPENIA [None]
  - RESPIRATORY FAILURE [None]
  - STOMATITIS [None]
  - THROMBOCYTOPENIA [None]
